FAERS Safety Report 8806436 (Version 1)
Quarter: 2012Q4

REPORT INFORMATION
  Report Type: 
  Country: US (occurrence: US)
  Receive Date: 20120925
  Receipt Date: 20120925
  Transmission Date: 20130627
  Serious: Yes (Hospitalization)
  Sender: FDA-Public Use
  Company Number: US-COVIDIEN/TYCO HEALTHCARE/MALLINCKRODT-T201203429

PATIENT
  Age: 52 Year
  Sex: Male

DRUGS (1)
  1. HYDROMORPHONE [Suspect]
     Indication: BACK PAIN
     Dosage: 19.8 mg, qd
     Route: 037

REACTIONS (2)
  - Granuloma [Recovering/Resolving]
  - Incorrect route of drug administration [Recovering/Resolving]
